FAERS Safety Report 13340394 (Version 1)
Quarter: 2017Q1

REPORT INFORMATION
  Report Type: Spontaneous
  Country: US (occurrence: US)
  Receive Date: 20170316
  Receipt Date: 20170316
  Transmission Date: 20170428
  Serious: No
  Sender: FDA-Public Use
  Company Number: US-PFIZER INC-2017015710

PATIENT
  Age: 77 Year
  Sex: Female
  Weight: 58.97 kg

DRUGS (12)
  1. IBRANCE [Suspect]
     Active Substance: PALBOCICLIB
     Indication: BREAST CANCER STAGE IV
     Dosage: 125 MG, CYCLIC (1 P.O. Q. DAY X 21 DAYS OFF 7)
     Route: 048
     Dates: start: 20161210
  2. FASLODEX [Concomitant]
     Active Substance: FULVESTRANT
     Dosage: 500 MG, UNK
     Route: 030
  3. ZOMETA [Concomitant]
     Active Substance: ZOLEDRONIC ACID
     Indication: BREAST CANCER FEMALE
     Dosage: 4 MG, UNK
     Route: 042
     Dates: start: 20160127
  4. ASPIRIN. [Concomitant]
     Active Substance: ASPIRIN
     Dosage: 81 MG, 1X/DAY
     Route: 048
  5. NORCO [Concomitant]
     Active Substance: ACETAMINOPHEN\HYDROCODONE BITARTRATE
     Dosage: UNK [HYDROCODONE BITARTRATE: 5MG , PARACETAMOL: 325 MG]
  6. XGEVA [Concomitant]
     Active Substance: DENOSUMAB
     Indication: BREAST CANCER FEMALE
     Dosage: 120 MG, UNK
     Dates: start: 20140619, end: 20160314
  7. XGEVA [Concomitant]
     Active Substance: DENOSUMAB
     Dosage: UNK
     Dates: start: 20150720, end: 20160106
  8. NP THYROID [Concomitant]
     Active Substance: LEVOTHYROXINE\LIOTHYRONINE
     Dosage: 60 MG, UNK
  9. RYZODEG 70/30 [Concomitant]
     Active Substance: INSULIN ASPART\INSULIN DEGLUDEC
     Dosage: UNK
  10. NIACIN. [Concomitant]
     Active Substance: NIACIN
     Dosage: 500 MG, UNK
  11. XGEVA [Concomitant]
     Active Substance: DENOSUMAB
     Dosage: UNK
     Dates: start: 201406, end: 201512
  12. TAMOXIFEN [Concomitant]
     Active Substance: TAMOXIFEN
     Dosage: 20 MG, UNK

REACTIONS (2)
  - Dizziness [Not Recovered/Not Resolved]
  - Malaise [Not Recovered/Not Resolved]

NARRATIVE: CASE EVENT DATE: 20170306
